FAERS Safety Report 10989902 (Version 3)
Quarter: 2015Q2

REPORT INFORMATION
  Report Type: Spontaneous
  Country: JP (occurrence: JP)
  Receive Date: 20150406
  Receipt Date: 20150601
  Transmission Date: 20150821
  Serious: Yes (Hospitalization, Other)
  Sender: FDA-Public Use
  Company Number: JP-ELI_LILLY_AND_COMPANY-JP201504000060

PATIENT
  Age: 70 Year
  Sex: Male
  Weight: 56.6 kg

DRUGS (10)
  1. BFLUID [Concomitant]
     Active Substance: AMINO ACIDS\DEXTROSE\ELECTROLYTES NOS\VITAMINS
     Dosage: 500 ML, QD
     Route: 042
  2. ALIMTA [Suspect]
     Active Substance: PEMETREXED DISODIUM
     Indication: LARGE CELL LUNG CANCER STAGE IV
     Dosage: 800 MG, OTHER
     Route: 042
     Dates: start: 20150318, end: 20150318
  3. PANVITAN                           /07504101/ [Concomitant]
     Indication: PROPHYLAXIS
     Dosage: UNK
     Route: 048
     Dates: start: 20150311
  4. GLYMACKEN [Concomitant]
     Indication: OEDEMA
     Dosage: 200 MG, BID
     Route: 042
  5. GOREISAN                           /08015901/ [Concomitant]
     Indication: OEDEMA
     Dosage: 2.5 G, TID
     Route: 048
  6. KEPPRA [Concomitant]
     Active Substance: LEVETIRACETAM
     Indication: SEIZURE
     Dosage: 500 MG, BID
     Route: 048
  7. CISPLATIN. [Suspect]
     Active Substance: CISPLATIN
     Indication: LARGE CELL LUNG CANCER STAGE IV
     Dosage: 120 MG, OTHER
     Route: 042
     Dates: start: 20150318, end: 20150318
  8. VITAMIN B12 [Concomitant]
     Active Substance: CYANOCOBALAMIN
     Indication: PROPHYLAXIS
     Dosage: UNK
     Route: 030
     Dates: start: 20150311, end: 20150311
  9. MAGMITT [Concomitant]
     Active Substance: MAGNESIUM OXIDE
     Indication: CONSTIPATION
     Dosage: 500 MG, TID
     Route: 048
  10. DIAPP [Concomitant]
     Active Substance: DIAZEPAM
     Indication: SEIZURE
     Dosage: 4 MG, BID
     Route: 054

REACTIONS (2)
  - Gastric ulcer haemorrhage [Recovered/Resolved]
  - Haemorrhagic anaemia [Not Recovered/Not Resolved]

NARRATIVE: CASE EVENT DATE: 20150324
